FAERS Safety Report 24447080 (Version 1)
Quarter: 2024Q4

REPORT INFORMATION
  Report Type: Spontaneous
  Country: IN (occurrence: IN)
  Receive Date: 20241016
  Receipt Date: 20241016
  Transmission Date: 20250115
  Serious: Yes (Life-Threatening, Hospitalization, Disabling)
  Sender: PFIZER
  Company Number: IN-MLMSERVICE-20241007-PI220395-00270-1

PATIENT
  Age: 38 Year
  Sex: Male

DRUGS (2)
  1. METHYLPREDNISOLONE SODIUM SUCCINATE [Suspect]
     Active Substance: METHYLPREDNISOLONE SODIUM SUCCINATE
     Indication: COVID-19
     Dosage: FREQ:12 H;2MG/KG BODY WEIGHT, TWICE A DAY
     Route: 042
  2. OXYGEN [Concomitant]
     Active Substance: OXYGEN
     Indication: Oxygen therapy
     Dosage: UNK

REACTIONS (5)
  - Disseminated mucormycosis [Recovered/Resolved]
  - Osteomyelitis [Recovered/Resolved]
  - Pulmonary mucormycosis [Recovered/Resolved]
  - Sinusitis fungal [Recovered/Resolved]
  - Off label use [Unknown]
